FAERS Safety Report 14434677 (Version 2)
Quarter: 2018Q1

REPORT INFORMATION
  Report Type: Report from Study
  Country: None (occurrence: CO)
  Receive Date: 20180124
  Receipt Date: 20180214
  Transmission Date: 20180509
  Serious: Yes (Other)
  Sender: FDA-Public Use
  Company Number: CO-ABBVIE-18K-036-2233277-00

PATIENT
  Age: 55 Year
  Sex: Female

DRUGS (2)
  1. METOPROLOL. [Concomitant]
     Active Substance: METOPROLOL
     Indication: PRODUCT USED FOR UNKNOWN INDICATION
  2. HUMIRA [Suspect]
     Active Substance: ADALIMUMAB
     Indication: ANKYLOSING SPONDYLITIS
     Route: 058
     Dates: start: 20150210, end: 20170620

REACTIONS (5)
  - Respiratory distress [Recovering/Resolving]
  - Pulmonary mass [Recovering/Resolving]
  - Haemoptysis [Unknown]
  - Epistaxis [Unknown]
  - Lung cyst [Recovering/Resolving]

NARRATIVE: CASE EVENT DATE: 201707
